FAERS Safety Report 18219768 (Version 1)
Quarter: 2020Q3

REPORT INFORMATION
  Report Type: Spontaneous
  Country: US (occurrence: US)
  Receive Date: 20200901
  Receipt Date: 20200901
  Transmission Date: 20201103
  Serious: No
  Sender: FDA-Public Use
  Company Number: US-LUNDBECK-DKLU3019766

PATIENT
  Age: 2 Year
  Sex: Female

DRUGS (3)
  1. CLOBAZAM. [Suspect]
     Active Substance: CLOBAZAM
     Indication: PETIT MAL EPILEPSY
     Route: 065
  2. ZONISAMIDE. [Suspect]
     Active Substance: ZONISAMIDE
     Indication: PETIT MAL EPILEPSY
     Route: 065
  3. VALPROIC ACID. [Suspect]
     Active Substance: VALPROIC ACID
     Indication: PETIT MAL EPILEPSY
     Route: 065

REACTIONS (1)
  - Off label use [Unknown]
